FAERS Safety Report 16403718 (Version 1)
Quarter: 2019Q3

REPORT INFORMATION
  Report Type: Spontaneous
  Country: US (occurrence: US)
  Receive Date: 20190606
  Receipt Date: 20190606
  Transmission Date: 20191004
  Serious: Yes (Disabling)
  Sender: FDA-Public Use
  Company Number: None

PATIENT
  Age: 47 Year
  Sex: Female
  Weight: 47.25 kg

DRUGS (5)
  1. CIPROFLOXACIN. [Suspect]
     Active Substance: CIPROFLOXACIN
     Indication: CAMPYLOBACTER INFECTION
     Dosage: ?          QUANTITY:6 TABLET(S);?
     Route: 048
     Dates: start: 20171016, end: 20171019
  2. CYMBALTA [Suspect]
     Active Substance: DULOXETINE HYDROCHLORIDE
  3. D [Concomitant]
  4. ALA [Concomitant]
  5. VITAMIN B12 [Suspect]
     Active Substance: CYANOCOBALAMIN

REACTIONS (3)
  - Disability [None]
  - Impaired work ability [None]
  - Small fibre neuropathy [None]

NARRATIVE: CASE EVENT DATE: 20190119
